FAERS Safety Report 5801906-9 (Version None)
Quarter: 2008Q3

REPORT INFORMATION
  Report Type: 
  Country: None (occurrence: None)
  Receive Date: 20080707
  Receipt Date: 20080623
  Transmission Date: 20090109
  Serious: Yes (Hospitalization, Other)
  Sender: FDA-Public Use
  Company Number: US-ELI_LILLY_AND_COMPANY-US200806004984

PATIENT
  Sex: Female

DRUGS (1)
  1. EVISTA [Suspect]
     Indication: OSTEOPOROSIS
     Dosage: 60 MG, UNK

REACTIONS (7)
  - ALOPECIA [None]
  - BREAST CANCER [None]
  - FATIGUE [None]
  - HAEMOGLOBIN DECREASED [None]
  - LYMPHOMA [None]
  - MIGRAINE [None]
  - VISION BLURRED [None]
